FAERS Safety Report 7604279-4 (Version None)
Quarter: 2011Q2

REPORT INFORMATION
  Report Type: 
  Country: None (occurrence: None)
  Receive Date: 20110630
  Receipt Date: 20110624
  Transmission Date: 20111010
  Serious: Yes (Hospitalization)
  Sender: FDA-Public Use
  Company Number: LEO-2011-00537

PATIENT
  Sex: Female
  Weight: 84 kg

DRUGS (4)
  1. ALFACALCIDOL (ALFACALCIDOL) [Concomitant]
  2. INNOHEP [Suspect]
     Indication: HAEMODIALYSIS
     Dosage: (2500 IU),HEMODIALYSIS
     Route: 010
     Dates: start: 20110418
  3. RENAGEL [Concomitant]
  4. VENOFER [Concomitant]

REACTIONS (13)
  - MALAISE [None]
  - HAEMOGLOBIN DECREASED [None]
  - NEUTROPHIL COUNT DECREASED [None]
  - SENSATION OF HEAVINESS [None]
  - PARAESTHESIA [None]
  - WHITE BLOOD CELL COUNT DECREASED [None]
  - DIZZINESS [None]
  - PALLOR [None]
  - FLUSHING [None]
  - HYPOAESTHESIA [None]
  - SKIN DISCOLOURATION [None]
  - PLATELET COUNT DECREASED [None]
  - BLOOD DISORDER [None]
